FAERS Safety Report 18563485 (Version 1)
Quarter: 2020Q4

REPORT INFORMATION
  Report Type: Spontaneous
  Country: ES (occurrence: ES)
  Receive Date: 20201201
  Receipt Date: 20201201
  Transmission Date: 20210114
  Serious: Yes (Other)
  Sender: FDA-Public Use
  Company Number: ES-009507513-2011ESP015230

PATIENT
  Age: 45 Year
  Sex: Female
  Weight: 58 kg

DRUGS (2)
  1. CELESTONE CRONODOSE [Suspect]
     Active Substance: BETAMETHASONE
     Dosage: REPORTED AS ^INJECTABLE SUSPENSION 1 VIAL OF 2 ML^
     Route: 042
     Dates: start: 20201026, end: 20201027
  2. MEPIVACAINE HYDROCHLORIDE. [Suspect]
     Active Substance: MEPIVACAINE HYDROCHLORIDE
     Dosage: REPORTED AS ^MEPIVACAINA DERMOGEN^ 30 MG/ML EFG, 50 CARTRIDGES OF 1.8 ML
     Route: 058
     Dates: start: 20201026, end: 20201027

REACTIONS (1)
  - Palatal oedema [Recovered/Resolved]

NARRATIVE: CASE EVENT DATE: 2020
